FAERS Safety Report 5925556-9 (Version None)
Quarter: 2008Q4

REPORT INFORMATION
  Report Type: 
  Country: None (occurrence: None)
  Receive Date: 20081021
  Receipt Date: 20081016
  Transmission Date: 20090506
  Serious: Yes (Death)
  Sender: FDA-Public Use
  Company Number: PHHY2008JP20133

PATIENT
  Sex: Female
  Weight: 36 kg

DRUGS (3)
  1. ICL670A ICL+DISTAB [Suspect]
     Indication: IRON OVERLOAD
     Dosage: UNK
     Route: 048
     Dates: start: 20080626, end: 20080709
  2. ICL670A ICL+DISTAB [Suspect]
     Dosage: UNK
     Route: 048
     Dates: start: 20080710, end: 20080806
  3. NEORAL [Suspect]
     Dosage: 170 MG/DAY
     Route: 048
     Dates: start: 20030101, end: 20080811

REACTIONS (4)
  - BLOOD CREATININE INCREASED [None]
  - CEREBRAL INFARCTION [None]
  - EMBOLISM [None]
  - MUCORMYCOSIS [None]
